FAERS Safety Report 6072270-8 (Version None)
Quarter: 2009Q1

REPORT INFORMATION
  Report Type: 
  Country: None (occurrence: None)
  Receive Date: 20090206
  Receipt Date: 20090206
  Transmission Date: 20090719
  Serious: Yes (Life-Threatening)
  Sender: FDA-Public Use
  Company Number: None

PATIENT
  Age: 31 Year
  Sex: Male
  Weight: 68.0396 kg

DRUGS (2)
  1. CYMBALTA [Suspect]
     Indication: PAIN
     Dosage: ONCE DAILY PO
     Route: 048
  2. CYMBALTA [Suspect]
     Indication: TEMPOROMANDIBULAR JOINT SYNDROME
     Dosage: ONCE DAILY PO
     Route: 048

REACTIONS (1)
  - SUICIDAL IDEATION [None]
